FAERS Safety Report 25411780 (Version 2)
Quarter: 2025Q2

REPORT INFORMATION
  Report Type: Spontaneous
  Country: CN (occurrence: CN)
  Receive Date: 20250609
  Receipt Date: 20250623
  Transmission Date: 20250716
  Serious: Yes (Other)
  Sender: DAIICHI
  Company Number: CN-DSJP-DS-2025-145411-CN

PATIENT
  Age: 40 Year
  Sex: Female

DRUGS (7)
  1. TRASTUZUMAB DERUXTECAN [Suspect]
     Active Substance: TRASTUZUMAB DERUXTECAN
     Indication: HER2 positive breast cancer
     Route: 065
  2. PEMETREXED [Suspect]
     Active Substance: PEMETREXED
     Indication: HER2 positive breast cancer
     Route: 037
  3. PEMETREXED [Suspect]
     Active Substance: PEMETREXED
     Route: 037
  4. PEMETREXED [Suspect]
     Active Substance: PEMETREXED
     Route: 037
  5. PEMETREXED [Suspect]
     Active Substance: PEMETREXED
     Route: 037
  6. PD-1 INHIBITOR [Concomitant]
     Indication: HER2 positive breast cancer
     Route: 065
  7. PD-1 INHIBITOR [Concomitant]
     Route: 065

REACTIONS (1)
  - Myelosuppression [Recovered/Resolved]
